FAERS Safety Report 5302664-7 (Version None)
Quarter: 2007Q1

REPORT INFORMATION
  Report Type: 
  Country: None (occurrence: None)
  Receive Date: 20070201
  Receipt Date: 20061216
  Transmission Date: 20070707
  Serious: No
  Sender: FDA-Public Use
  Company Number: 2006PV027077

PATIENT
  Age: 45 Year
  Sex: Female

DRUGS (6)
  1. BYETTA [Suspect]
     Indication: DIABETES MELLITUS NON-INSULIN-DEPENDENT
     Dosage: SEE IMAGE
     Route: 058
     Dates: start: 20051101, end: 20051201
  2. BYETTA [Suspect]
     Indication: DIABETES MELLITUS NON-INSULIN-DEPENDENT
     Dosage: SEE IMAGE
     Route: 058
     Dates: start: 20051201
  3. ACTOPLUS MET [Suspect]
     Dosage: SEE IMAGE
     Route: 048
     Dates: end: 20061001
  4. ACTOPLUS MET [Suspect]
     Dosage: SEE IMAGE
     Route: 048
     Dates: start: 20061001
  5. PRANDIN [Concomitant]
  6. LANTUS [Concomitant]

REACTIONS (2)
  - BLOOD GLUCOSE INCREASED [None]
  - JOINT SWELLING [None]
